FAERS Safety Report 9582031 (Version 1)
Quarter: 2013Q4

REPORT INFORMATION
  Report Type: Spontaneous
  Country: US (occurrence: US)
  Receive Date: 20131002
  Receipt Date: 20131002
  Transmission Date: 20140711
  Serious: No
  Sender: FDA-Public Use
  Company Number: US-AMGEN-USASP2013000021

PATIENT
  Age: 60 Year
  Sex: Female
  Weight: 111 kg

DRUGS (8)
  1. ENBREL [Suspect]
     Indication: PSORIATIC ARTHROPATHY
     Dosage: 50 MG TWICE A WEEK 72-96 HOURS APART
     Route: 058
  2. LIPITOR [Concomitant]
     Dosage: 20 MG, UNK
     Route: 048
  3. CELEBREX [Concomitant]
     Dosage: 200 MG, UNK
     Route: 048
  4. BENICAR [Concomitant]
     Dosage: 20 MG, UNK
     Route: 048
  5. COQ-10 [Concomitant]
     Dosage: 100 MG, UNK
     Route: 048
  6. TRIAMCINOLON                       /00031901/ [Concomitant]
     Dosage: 0.025 %, UNK
  7. TACLONEX [Concomitant]
     Dosage: UNK
  8. LORTAB                             /00607101/ [Concomitant]
     Dosage: 5 TABLETS,UNK
     Route: 048

REACTIONS (4)
  - Throat irritation [Unknown]
  - Upper-airway cough syndrome [Unknown]
  - Headache [Unknown]
  - Injection site reaction [Unknown]
